FAERS Safety Report 11171689 (Version 1)
Quarter: 2015Q2

REPORT INFORMATION
  Report Type: Spontaneous
  Country: US (occurrence: None)
  Receive Date: 20150605
  Receipt Date: 20150605
  Transmission Date: 20150821
  Serious: Yes (Life-Threatening, Hospitalization)
  Sender: FDA-Public Use
  Company Number: None

PATIENT
  Age: 65 Year
  Sex: Female
  Weight: 72.58 kg

DRUGS (14)
  1. PRILOSEC [Concomitant]
     Active Substance: OMEPRAZOLE MAGNESIUM
  2. DOXYCYCLINE. [Concomitant]
     Active Substance: DOXYCYCLINE
  3. HYDROCODONE [Concomitant]
     Active Substance: HYDROCODONE
  4. DULERA [Concomitant]
     Active Substance: FORMOTEROL FUMARATE DIHYDRATE\MOMETASONE FUROATE
  5. MELATONIN [Concomitant]
     Active Substance: MELATONIN
  6. VSL#3 [Concomitant]
     Active Substance: PROBIOTICS NOS
  7. ZETIA [Concomitant]
     Active Substance: EZETIMIBE
  8. PROVENTIL [Concomitant]
     Active Substance: ALBUTEROL
  9. LEVOXYL [Concomitant]
     Active Substance: LEVOTHYROXINE SODIUM
  10. TIZANIDINE (TIZANIDINE) [Suspect]
     Active Substance: TIZANIDINE
     Indication: SPINAL FRACTURE
     Dosage: TAKEN BY MOUTH
     Dates: start: 20150503, end: 20150504
  11. TRAMADOL [Concomitant]
     Active Substance: TRAMADOL
  12. LEVAQUIN [Concomitant]
     Active Substance: LEVOFLOXACIN
  13. TIZANIDINE (TIZANIDINE) [Suspect]
     Active Substance: TIZANIDINE
     Indication: MUSCLE SPASMS
     Dosage: TAKEN BY MOUTH
     Dates: start: 20150503, end: 20150504
  14. CLARITIN REDITABS [Concomitant]
     Active Substance: LORATADINE

REACTIONS (4)
  - Dyspnoea [None]
  - Bradycardia [None]
  - Swelling face [None]
  - Mouth swelling [None]

NARRATIVE: CASE EVENT DATE: 20150504
